FAERS Safety Report 9435488 (Version 1)
Quarter: 2013Q3

REPORT INFORMATION
  Report Type: Spontaneous
  Country: US (occurrence: None)
  Receive Date: 20130730
  Receipt Date: 20130730
  Transmission Date: 20140515
  Serious: Yes (Life-Threatening, Congenital Anomaly)
  Sender: FDA-Public Use
  Company Number: 149726

PATIENT
  Age: 27 Year
  Sex: Female

DRUGS (2)
  1. ADRIAMYCIN (DOXORUBICIN) INJ. USP 10MG/5ML - BEDFORD LABS, INC. [Suspect]
     Dosage: DAYS 1-3
  2. ETOPOSIDE [Suspect]
     Dosage: DAY

REACTIONS (4)
  - Oligohydramnios [None]
  - Foetal death [None]
  - Abortion [None]
  - Exposure during pregnancy [None]
